FAERS Safety Report 12138359 (Version 2)
Quarter: 2016Q1

REPORT INFORMATION
  Report Type: Spontaneous
  Country: BR (occurrence: BR)
  Receive Date: 20160302
  Receipt Date: 20160304
  Transmission Date: 20160526
  Serious: Yes (Death, Hospitalization)
  Sender: FDA-Public Use
  Company Number: PHHY2016BR027861

PATIENT
  Age: 99 Year
  Sex: Male
  Weight: 75 kg

DRUGS (1)
  1. DIOVAN [Suspect]
     Active Substance: VALSARTAN
     Indication: HYPERTENSION
     Dosage: 1 DF, QD IN THE MORNING
     Route: 048

REACTIONS (7)
  - Respiratory failure [Fatal]
  - Emotional distress [Unknown]
  - Somnolence [Unknown]
  - Cardiac arrest [Fatal]
  - Agitation [Unknown]
  - Impatience [Unknown]
  - Malaise [Unknown]

NARRATIVE: CASE EVENT DATE: 20151227
